FAERS Safety Report 16812235 (Version 1)
Quarter: 2019Q3

REPORT INFORMATION
  Report Type: Spontaneous
  Country: US (occurrence: US)
  Receive Date: 20190916
  Receipt Date: 20190916
  Transmission Date: 20191005
  Serious: No
  Sender: FDA-Public Use
  Company Number: US-TARO-2018TAR00847

PATIENT
  Sex: Female

DRUGS (1)
  1. FLUOCINONIDE GEL USP 0.05% [Suspect]
     Active Substance: FLUOCINONIDE
     Indication: ORAL LICHEN PLANUS
     Dosage: UNK
     Route: 002
     Dates: start: 2018

REACTIONS (3)
  - Off label use [Unknown]
  - Oral mucosal erythema [Unknown]
  - Product administered at inappropriate site [Unknown]

NARRATIVE: CASE EVENT DATE: 2018
